FAERS Safety Report 20206527 (Version 18)
Quarter: 2023Q1

REPORT INFORMATION
  Report Type: Report from Study
  Country: US (occurrence: US)
  Receive Date: 20211220
  Receipt Date: 20230224
  Transmission Date: 20230418
  Serious: Yes (Other)
  Sender: FDA-Public Use
  Company Number: US-NOVARTISTESTPH-NVSC2021US290008

PATIENT
  Sex: Male
  Weight: 58.957 kg

DRUGS (14)
  1. TREPROSTINIL [Suspect]
     Active Substance: TREPROSTINIL
     Indication: Pulmonary arterial hypertension
     Dosage: 18 NG/KG/MIN, CONT, CONCENTRATION: 1 MG/ML)
     Route: 042
     Dates: start: 20211209
  2. TREPROSTINIL [Suspect]
     Active Substance: TREPROSTINIL
     Dosage: 28 NG/KG/MIN, CONT, CONCENTRATION: 1 MG/ML)
     Route: 042
  3. TREPROSTINIL [Suspect]
     Active Substance: TREPROSTINIL
     Dosage: 36 NG/KG/MIN, CONT, CONCENTRATION: 1 MG/ML)
     Route: 042
  4. TREPROSTINIL [Suspect]
     Active Substance: TREPROSTINIL
     Dosage: 42 NG/KG/MIN, CONT (STRENGTH: 1 MG/ML)
     Route: 042
  5. TREPROSTINIL [Suspect]
     Active Substance: TREPROSTINIL
     Dosage: 52 NG/KG/MIN, CONT CONCENTRATION: 1 MG/ML
     Route: 042
  6. TREPROSTINIL [Suspect]
     Active Substance: TREPROSTINIL
     Dosage: 58 NG/KG/MIN, CONT (STRENGTH: 2.5MG/ML)
     Route: 042
  7. TREPROSTINIL [Suspect]
     Active Substance: TREPROSTINIL
     Dosage: 62 NG/KG/MIN, CONT, CONCENTRATION: 2.5 MG/ML)
     Route: 042
  8. TREPROSTINIL [Suspect]
     Active Substance: TREPROSTINIL
     Dosage: 70 NG/KG/MIN, CONT (CONCENTRATION: 2.5 MG/ML)
     Route: 042
  9. TREPROSTINIL [Suspect]
     Active Substance: TREPROSTINIL
     Dosage: 72 NG/KG/MIN, CONT (CONCENTRATION: 2.5 MG/ML)
     Route: 042
  10. TREPROSTINIL [Suspect]
     Active Substance: TREPROSTINIL
     Dosage: 74 NG/KG/MIN, CONT (STRENGTH: 2.5MG/ML)
     Route: 042
  11. TREPROSTINIL [Suspect]
     Active Substance: TREPROSTINIL
     Dosage: 76 NG/KG/MIN, CONT (STRENGTH: 2.5MG/ML)
     Route: 042
  12. AMBRISENTAN [Suspect]
     Active Substance: AMBRISENTAN
     Indication: Product used for unknown indication
     Dosage: UNK
     Route: 065
  13. AMBRISENTAN [Suspect]
     Active Substance: AMBRISENTAN
     Dosage: 10 MG
     Route: 065
  14. TADALAFIL [Concomitant]
     Active Substance: TADALAFIL
     Indication: Product used for unknown indication
     Dosage: UNK
     Route: 065

REACTIONS (19)
  - Post procedural haemorrhage [Recovered/Resolved]
  - Heart rate increased [Unknown]
  - Pain in jaw [Recovered/Resolved]
  - Joint swelling [Unknown]
  - Weight decreased [Not Recovered/Not Resolved]
  - Gastrooesophageal reflux disease [Recovering/Resolving]
  - Erythema [Unknown]
  - Chest discomfort [Unknown]
  - Dyspnoea [Unknown]
  - Catheter site haemorrhage [Unknown]
  - Catheter site pruritus [Unknown]
  - Catheter site erythema [Unknown]
  - Dizziness [Unknown]
  - Nausea [Recovering/Resolving]
  - Diarrhoea [Recovering/Resolving]
  - Headache [Recovering/Resolving]
  - Application site haemorrhage [Unknown]
  - Application site discolouration [Recovered/Resolved]
  - Device leakage [Unknown]
